FAERS Safety Report 19284099 (Version 1)
Quarter: 2021Q2

REPORT INFORMATION
  Report Type: Spontaneous
  Country: US (occurrence: US)
  Receive Date: 20210521
  Receipt Date: 20210521
  Transmission Date: 20210717
  Serious: Yes (Hospitalization, Disabling)
  Sender: FDA-Public Use
  Company Number: US-TEVA-2021-US-1906213

PATIENT
  Age: 52 Year
  Sex: Female
  Weight: 70.3 kg

DRUGS (102)
  1. DOCETAXEL SAGENT PHARMACEUTICALS [Suspect]
     Active Substance: DOCETAXEL
     Dosage: STRENGTH: 20MG, 20MG/1ML; DOSAGE: 120MG, NO OF CYCLES: 06, FREQUENCY: EVERY 3 WEEKS
     Route: 065
     Dates: start: 20150107, end: 20150107
  2. CARBOPLATIN. [Suspect]
     Active Substance: CARBOPLATIN
     Dosage: NO OF CYCLES: 06, FREQUENCY: EVERY 3 WEEKS, STRENGTH: 450MG 10MG/ML 45ML
     Route: 065
     Dates: start: 20141217, end: 20141217
  3. HERCEPTIN [Suspect]
     Active Substance: TRASTUZUMAB
     Dosage: NO OF CYCLES: 06, FREQUENCY: EVERY 3 WEEKS, STRENGTH: 440MG
     Route: 065
     Dates: start: 20150225, end: 20150225
  4. HERCEPTIN [Suspect]
     Active Substance: TRASTUZUMAB
     Dosage: NO OF CYCLES: 06, FREQUENCY: EVERY 3 WEEKS, STRENGTH: 440MG
     Route: 065
     Dates: start: 20151111, end: 20151111
  5. PERJETA [Suspect]
     Active Substance: PERTUZUMAB
     Dosage: NO OF CYCLES: 06, FREQUENCY: EVERY 3 WEEKS, STRENGTH: 420MG 30MG/14ML
     Route: 065
     Dates: start: 20150107, end: 20150107
  6. PERJETA [Suspect]
     Active Substance: PERTUZUMAB
     Dosage: NO OF CYCLES: 06, FREQUENCY: EVERY 3 WEEKS, STRENGTH: 420MG 30MG/14ML
     Route: 065
     Dates: start: 20150204, end: 20150204
  7. PERJETA [Suspect]
     Active Substance: PERTUZUMAB
     Dosage: NO OF CYCLES: 06, FREQUENCY: EVERY 3 WEEKS, STRENGTH: 420MG 30MG/14ML
     Route: 065
     Dates: start: 20150318, end: 20150318
  8. MAGNESIUM SULFATE. [Concomitant]
     Active Substance: MAGNESIUM SULFATE
     Dosage: 50% 5GM 10ML
     Route: 065
     Dates: start: 20161212, end: 20161212
  9. NEULASTA [Concomitant]
     Active Substance: PEGFILGRASTIM
     Dosage: 6MG 10MG/ML 0.6ML SYRINGE
     Route: 065
     Dates: start: 20150205, end: 20150205
  10. TYLENOL [Concomitant]
     Active Substance: ACETAMINOPHEN
  11. ALOXI [Concomitant]
     Active Substance: PALONOSETRON HYDROCHLORIDE
     Dosage: 250MCG 0.25MG/5ML
     Route: 065
     Dates: start: 20150408, end: 20150408
  12. ARANESP [Concomitant]
     Active Substance: DARBEPOETIN ALFA
     Dosage: 500 MICROGRAM 1ML POLYSORBATE PREFILL SYRINGE
     Route: 065
     Dates: start: 20150318, end: 20150318
  13. LORAZEPAM. [Concomitant]
     Active Substance: LORAZEPAM
     Dosage: 2MG 2MG/1ML
     Route: 065
     Dates: start: 20150204, end: 20150204
  14. ATROPINE SULFATE. [Concomitant]
     Active Substance: ATROPINE SULFATE
     Dosage: 0.4MG/ML 20ML
     Route: 065
     Dates: start: 20150212, end: 20150212
  15. DOCETAXEL SAGENT PHARMACEUTICALS [Suspect]
     Active Substance: DOCETAXEL
     Dosage: STRENGTH: 80MG, 80MG/4ML; DOSAGE: 120MG, NO OF CYCLES: 06, FREQUENCY: EVERY 3 WEEKS
     Route: 065
     Dates: start: 20150107, end: 20150107
  16. DOCETAXEL SAGENT PHARMACEUTICALS [Suspect]
     Active Substance: DOCETAXEL
     Dosage: STRENGTH: 80MG, 80MG/4ML; DOSAGE: 120MG, NO OF CYCLES: 06, FREQUENCY: EVERY 3 WEEKS
     Route: 065
     Dates: start: 20150318, end: 20150318
  17. CARBOPLATIN. [Suspect]
     Active Substance: CARBOPLATIN
     Dosage: NO OF CYCLES: 06, FREQUENCY: EVERY 3 WEEKS, STRENGTH: 450MG 10MG/ML 45ML
     Route: 065
     Dates: start: 20150107, end: 20150107
  18. CARBOPLATIN. [Suspect]
     Active Substance: CARBOPLATIN
     Dosage: NO OF CYCLES: 06, FREQUENCY: EVERY 3 WEEKS, STRENGTH: 450MG 10MG/ML 45ML
     Route: 065
     Dates: start: 20150204, end: 20150204
  19. CARBOPLATIN. [Suspect]
     Active Substance: CARBOPLATIN
     Dosage: NO OF CYCLES: 06, FREQUENCY: EVERY 3 WEEKS, STRENGTH: 450MG 10MG/ML 45ML
     Route: 065
     Dates: start: 20150225, end: 20150225
  20. HERCEPTIN [Suspect]
     Active Substance: TRASTUZUMAB
     Dosage: NO OF CYCLES: 06, FREQUENCY: EVERY 3 WEEKS, STRENGTH: 440MG
     Route: 065
     Dates: start: 20150617, end: 20150617
  21. HERCEPTIN [Suspect]
     Active Substance: TRASTUZUMAB
     Dosage: NO OF CYCLES: 06, FREQUENCY: EVERY 3 WEEKS, STRENGTH: 440MG
     Route: 065
     Dates: start: 20150729, end: 20150729
  22. HERCEPTIN [Suspect]
     Active Substance: TRASTUZUMAB
     Dosage: NO OF CYCLES: 06, FREQUENCY: EVERY 3 WEEKS, STRENGTH: 440MG
     Route: 065
     Dates: start: 20151202, end: 20151202
  23. MAGNESIUM SULFATE. [Concomitant]
     Active Substance: MAGNESIUM SULFATE
     Dosage: 50% 5GM 10ML
     Route: 065
     Dates: start: 20150210, end: 20150210
  24. MAGNESIUM SULFATE. [Concomitant]
     Active Substance: MAGNESIUM SULFATE
     Dosage: 50% 5GM 10ML
     Route: 065
     Dates: start: 20150303, end: 20150303
  25. NEULASTA [Concomitant]
     Active Substance: PEGFILGRASTIM
     Dosage: 6MG 10MG/ML 0.6ML SYRINGE
     Route: 065
     Dates: start: 20150108, end: 20150108
  26. NEULASTA [Concomitant]
     Active Substance: PEGFILGRASTIM
     Dosage: 6MG 10MG/ML 0.6ML SYRINGE
     Route: 065
     Dates: start: 20150409, end: 20150409
  27. DEXAMETHASONE. [Concomitant]
     Active Substance: DEXAMETHASONE
     Dosage: 120MG 4MG/ML 30ML
     Route: 065
     Dates: start: 20150318, end: 20150318
  28. ONDANSETRON [Concomitant]
     Active Substance: ONDANSETRON
     Dosage: 40MG 2MG/ML 20ML
     Route: 065
     Dates: start: 20150112, end: 20150112
  29. ONDANSETRON [Concomitant]
     Active Substance: ONDANSETRON
     Dosage: 40MG 2MG/ML 20ML
     Route: 065
     Dates: start: 20150324, end: 20150324
  30. ALOXI [Concomitant]
     Active Substance: PALONOSETRON HYDROCHLORIDE
     Dosage: 250MCG 0.25MG/5ML
     Route: 065
     Dates: start: 20141210, end: 20141210
  31. ARANESP [Concomitant]
     Active Substance: DARBEPOETIN ALFA
     Dosage: 500 MICROGRAM 1ML POLYSORBATE PREFILL SYRINGE
     Route: 065
     Dates: start: 20150421, end: 20150421
  32. FAMOTIDINE. [Concomitant]
     Active Substance: FAMOTIDINE
     Dosage: 20MG 10MG/ML 2ML
     Dates: start: 20150112, end: 20150112
  33. CARBOPLATIN. [Suspect]
     Active Substance: CARBOPLATIN
     Dosage: NO OF CYCLES: 06, FREQUENCY: EVERY 3 WEEKS, STRENGTH: 450MG 10MG/ML 45ML
     Route: 065
     Dates: start: 20150408, end: 20150408
  34. HERCEPTIN [Suspect]
     Active Substance: TRASTUZUMAB
     Dosage: NO OF CYCLES: 06, FREQUENCY: EVERY 3 WEEKS, STRENGTH: 440MG
     Route: 065
     Dates: start: 20160203, end: 20160203
  35. HERCEPTIN [Suspect]
     Active Substance: TRASTUZUMAB
     Dosage: NO OF CYCLES: 06, FREQUENCY: EVERY 3 WEEKS, STRENGTH: 440MG
     Route: 065
     Dates: start: 20160316, end: 20160316
  36. DEXAMETHASONE. [Concomitant]
     Active Substance: DEXAMETHASONE
     Dosage: 120MG 4MG/ML 30ML
     Route: 065
     Dates: start: 20141210, end: 20141210
  37. DEXAMETHASONE. [Concomitant]
     Active Substance: DEXAMETHASONE
     Dosage: 120MG 4MG/ML 30ML
     Route: 065
     Dates: start: 20150112, end: 20150112
  38. DOCETAXEL SAGENT PHARMACEUTICALS [Suspect]
     Active Substance: DOCETAXEL
     Indication: BREAST CANCER FEMALE
     Dosage: STRENGTH: 20MG, 20MG/1ML; DOSAGE: 120MG, NO OF CYCLES: 06, FREQUENCY: EVERY 3 WEEKS
     Route: 065
     Dates: start: 20141217, end: 20141217
  39. DOCETAXEL SAGENT PHARMACEUTICALS [Suspect]
     Active Substance: DOCETAXEL
     Dosage: STRENGTH: 80MG, 80MG/4ML; DOSAGE: 120MG, NO OF CYCLES: 06, FREQUENCY: EVERY 3 WEEKS
     Route: 065
     Dates: start: 20150225, end: 20150225
  40. HERCEPTIN [Suspect]
     Active Substance: TRASTUZUMAB
     Dosage: NO OF CYCLES: 06, FREQUENCY: EVERY 3 WEEKS, STRENGTH: 440MG
     Route: 065
     Dates: start: 20150107, end: 20150107
  41. HERCEPTIN [Suspect]
     Active Substance: TRASTUZUMAB
     Dosage: NO OF CYCLES: 06, FREQUENCY: EVERY 3 WEEKS, STRENGTH: 440MG
     Route: 065
     Dates: start: 20151021, end: 20151021
  42. MAGNESIUM SULFATE. [Concomitant]
     Active Substance: MAGNESIUM SULFATE
     Dosage: 50% 5GM 10ML
     Route: 065
     Dates: start: 20150225, end: 20150225
  43. MAGNESIUM SULFATE. [Concomitant]
     Active Substance: MAGNESIUM SULFATE
     Dosage: 50% 5GM 10ML
     Route: 065
     Dates: start: 20150527, end: 20150527
  44. NEULASTA [Concomitant]
     Active Substance: PEGFILGRASTIM
     Dosage: 6MG 10MG/ML 0.6ML SYRINGE
     Route: 065
     Dates: start: 20141218, end: 20141218
  45. DEXAMETHASONE. [Concomitant]
     Active Substance: DEXAMETHASONE
     Dosage: 120MG 4MG/ML 30ML
     Route: 065
     Dates: start: 20150324, end: 20150324
  46. ONDANSETRON [Concomitant]
     Active Substance: ONDANSETRON
     Dosage: 40MG 2MG/ML 20ML
     Route: 065
     Dates: start: 20150210, end: 20150210
  47. POTASSIUM CHLORIDE. [Concomitant]
     Active Substance: POTASSIUM CHLORIDE
     Dosage: 20MEQ 10ML
     Route: 065
     Dates: start: 20150112, end: 20150112
  48. DOCETAXEL SAGENT PHARMACEUTICALS [Suspect]
     Active Substance: DOCETAXEL
     Dosage: STRENGTH: 80MG, 80MG/4ML; DOSAGE: 120MG, NO OF CYCLES: 06, FREQUENCY: EVERY 3 WEEKS
     Route: 065
     Dates: start: 20150408, end: 20150408
  49. DOCETAXEL ACCORD HEALTHCARE [Suspect]
     Active Substance: DOCETAXEL
     Dosage: STRENGTH: 20MG, 20MG/1ML; DOSAGE: 120MG, NO OF CYCLES: 06, FREQUENCY: EVERY 3 WEEKS
     Route: 065
     Dates: start: 20150225, end: 20150225
  50. CARBOPLATIN. [Suspect]
     Active Substance: CARBOPLATIN
     Indication: BREAST CANCER FEMALE
     Dosage: NO OF CYCLES: 06, FREQUENCY: EVERY 3 WEEKS, STRENGTH: 450MG 10MG/ML 45ML
     Route: 065
     Dates: start: 20141217, end: 20141217
  51. HERCEPTIN [Suspect]
     Active Substance: TRASTUZUMAB
     Indication: BREAST CANCER FEMALE
     Dosage: NO OF CYCLES: 06, FREQUENCY: EVERY 3 WEEKS, STRENGTH: 440MG
     Route: 065
     Dates: start: 20141217, end: 20141217
  52. HERCEPTIN [Suspect]
     Active Substance: TRASTUZUMAB
     Dosage: NO OF CYCLES: 06, FREQUENCY: EVERY 3 WEEKS, STRENGTH: 440MG
     Route: 065
     Dates: start: 20150204, end: 20150204
  53. HERCEPTIN [Suspect]
     Active Substance: TRASTUZUMAB
     Dosage: NO OF CYCLES: 06, FREQUENCY: EVERY 3 WEEKS, STRENGTH: 440MG
     Route: 065
     Dates: start: 20150318, end: 20150318
  54. HERCEPTIN [Suspect]
     Active Substance: TRASTUZUMAB
     Dosage: NO OF CYCLES: 06, FREQUENCY: EVERY 3 WEEKS, STRENGTH: 440MG
     Route: 065
     Dates: start: 20150408, end: 20150408
  55. HERCEPTIN [Suspect]
     Active Substance: TRASTUZUMAB
     Dosage: NO OF CYCLES: 06, FREQUENCY: EVERY 3 WEEKS, STRENGTH: 440MG
     Route: 065
     Dates: start: 20150527, end: 20150527
  56. HERCEPTIN [Suspect]
     Active Substance: TRASTUZUMAB
     Dosage: NO OF CYCLES: 06, FREQUENCY: EVERY 3 WEEKS, STRENGTH: 440MG
     Route: 065
     Dates: start: 20160224, end: 20160224
  57. HERCEPTIN [Suspect]
     Active Substance: TRASTUZUMAB
     Dosage: NO OF CYCLES: 06, FREQUENCY: EVERY 3 WEEKS, STRENGTH: 440MG
     Route: 065
     Dates: start: 20160406, end: 20160406
  58. PERJETA [Suspect]
     Active Substance: PERTUZUMAB
     Indication: BREAST CANCER FEMALE
     Dosage: NO OF CYCLES: 06, FREQUENCY: EVERY 3 WEEKS, STRENGTH: 420MG 30MG/14ML
     Route: 065
     Dates: start: 20141217, end: 20141217
  59. NEULASTA [Concomitant]
     Active Substance: PEGFILGRASTIM
     Dosage: 6MG 10MG/ML 0.6ML SYRINGE
     Route: 065
     Dates: start: 20150108, end: 20150108
  60. NEULASTA [Concomitant]
     Active Substance: PEGFILGRASTIM
     Dosage: 6MG 10MG/ML 0.6ML SYRINGE
     Route: 065
     Dates: start: 20150226, end: 20150226
  61. DEXAMETHASONE. [Concomitant]
     Active Substance: DEXAMETHASONE
     Dosage: 120MG 4MG/ML 30ML
     Route: 065
     Dates: start: 20150421, end: 20150421
  62. DIPHENHYDRAMINE. [Concomitant]
     Active Substance: DIPHENHYDRAMINE
  63. ONDANSETRON [Concomitant]
     Active Substance: ONDANSETRON
     Dosage: 40MG 2MG/ML 20ML
     Route: 065
     Dates: start: 20150212, end: 20150212
  64. EMEND [Concomitant]
     Active Substance: APREPITANT
     Dates: start: 20150318, end: 20150318
  65. ALOXI [Concomitant]
     Active Substance: PALONOSETRON HYDROCHLORIDE
     Dosage: 250MCG 0.25MG/5ML
     Route: 065
     Dates: start: 20150107, end: 20150107
  66. POTASSIUM CHLORIDE. [Concomitant]
     Active Substance: POTASSIUM CHLORIDE
     Dosage: 20MEQ 10ML
     Route: 065
     Dates: start: 20150113, end: 20150113
  67. DOCETAXEL SAGENT PHARMACEUTICALS [Suspect]
     Active Substance: DOCETAXEL
     Dosage: STRENGTH: 80MG, 80MG/4ML; DOSAGE: 120MG, NO OF CYCLES: 06, FREQUENCY: EVERY 3 WEEKS
     Route: 065
     Dates: start: 20150204, end: 20150204
  68. DOCETAXEL ACCORD HEALTHCARE [Suspect]
     Active Substance: DOCETAXEL
     Indication: BREAST CANCER FEMALE
     Dosage: STRENGTH: 20MG, 20MG/1ML; DOSAGE: 120MG, NO OF CYCLES: 06, FREQUENCY: EVERY 3 WEEKS
     Route: 065
     Dates: start: 20150204, end: 20150204
  69. DOCETAXEL ACCORD HEALTHCARE [Suspect]
     Active Substance: DOCETAXEL
     Dosage: STRENGTH: 20MG, 20MG/1ML; DOSAGE: 120MG, NO OF CYCLES: 06, FREQUENCY: EVERY 3 WEEKS
     Route: 065
     Dates: start: 20150318, end: 20150318
  70. CARBOPLATIN. [Suspect]
     Active Substance: CARBOPLATIN
     Dosage: NO OF CYCLES: 06, FREQUENCY: EVERY 3 WEEKS, STRENGTH: 450MG 10MG/ML 45ML
     Route: 065
     Dates: start: 20150318, end: 20150318
  71. HERCEPTIN [Suspect]
     Active Substance: TRASTUZUMAB
     Dosage: NO OF CYCLES: 06, FREQUENCY: EVERY 3 WEEKS, STRENGTH: 440MG
     Route: 065
     Dates: start: 20150708, end: 20150708
  72. HERCEPTIN [Suspect]
     Active Substance: TRASTUZUMAB
     Dosage: NO OF CYCLES: 06, FREQUENCY: EVERY 3 WEEKS, STRENGTH: 440MG
     Route: 065
     Dates: start: 20150930, end: 20150930
  73. PERJETA [Suspect]
     Active Substance: PERTUZUMAB
     Dosage: NO OF CYCLES: 06, FREQUENCY: EVERY 3 WEEKS, STRENGTH: 420MG 30MG/14ML
     Route: 065
     Dates: start: 20150225, end: 20150225
  74. MAGNESIUM SULFATE. [Concomitant]
     Active Substance: MAGNESIUM SULFATE
     Dosage: 50% 5GM 10ML
     Route: 065
     Dates: start: 20150313, end: 20150313
  75. MAGNESIUM SULFATE. [Concomitant]
     Active Substance: MAGNESIUM SULFATE
     Dosage: 50% 5GM 10ML
     Route: 065
     Dates: start: 20150527, end: 20150527
  76. DEXAMETHASONE. [Concomitant]
     Active Substance: DEXAMETHASONE
     Dosage: 120MG 4MG/ML 30ML
     Route: 065
     Dates: start: 20150212, end: 20150212
  77. DEXAMETHASONE. [Concomitant]
     Active Substance: DEXAMETHASONE
     Dosage: 120MG 4MG/ML 30ML
     Route: 065
     Dates: start: 20150408, end: 20150408
  78. ALOXI [Concomitant]
     Active Substance: PALONOSETRON HYDROCHLORIDE
     Dosage: 250MCG 0.25MG/5ML
     Route: 065
     Dates: start: 20150225, end: 20150225
  79. HERCEPTIN [Suspect]
     Active Substance: TRASTUZUMAB
     Dosage: NO OF CYCLES: 06, FREQUENCY: EVERY 3 WEEKS, STRENGTH: 440MG
     Route: 065
     Dates: start: 20150909, end: 20150909
  80. HERCEPTIN [Suspect]
     Active Substance: TRASTUZUMAB
     Dosage: NO OF CYCLES: 06, FREQUENCY: EVERY 3 WEEKS, STRENGTH: 440MG
     Route: 065
     Dates: start: 20151223, end: 20151223
  81. NEULASTA [Concomitant]
     Active Substance: PEGFILGRASTIM
     Dosage: 6MG 10MG/ML 0.6ML SYRINGE
     Route: 065
     Dates: start: 20150319, end: 20150319
  82. DEXAMETHASONE. [Concomitant]
     Active Substance: DEXAMETHASONE
     Dosage: 120MG 4MG/ML 30ML
     Route: 065
     Dates: start: 20150107, end: 20150107
  83. DEXAMETHASONE. [Concomitant]
     Active Substance: DEXAMETHASONE
     Dosage: 120MG 4MG/ML 30ML
     Route: 065
     Dates: start: 20150204, end: 20150204
  84. DEXAMETHASONE. [Concomitant]
     Active Substance: DEXAMETHASONE
     Dosage: 120MG 4MG/ML 30ML
     Route: 065
     Dates: start: 20150210, end: 20150210
  85. DEXAMETHASONE. [Concomitant]
     Active Substance: DEXAMETHASONE
     Dosage: 120MG 4MG/ML 30ML
     Route: 065
     Dates: start: 20150225, end: 20150225
  86. ONDANSETRON [Concomitant]
     Active Substance: ONDANSETRON
     Dosage: 40MG 2MG/ML 20ML
     Route: 065
     Dates: start: 20150112, end: 20150112
  87. ONDANSETRON [Concomitant]
     Active Substance: ONDANSETRON
     Dosage: 40MG 2MG/ML 20ML
     Route: 065
     Dates: start: 20150421, end: 20150421
  88. EMEND [Concomitant]
     Active Substance: APREPITANT
     Dates: start: 20150408, end: 20150408
  89. ALOXI [Concomitant]
     Active Substance: PALONOSETRON HYDROCHLORIDE
     Dosage: 250MCG 0.25MG/5ML
     Route: 065
     Dates: start: 20141217, end: 20141217
  90. ALOXI [Concomitant]
     Active Substance: PALONOSETRON HYDROCHLORIDE
     Dosage: 250MCG 0.25MG/5ML
     Route: 065
     Dates: start: 20150204, end: 20150204
  91. ALOXI [Concomitant]
     Active Substance: PALONOSETRON HYDROCHLORIDE
     Dosage: 250MCG 0.25MG/5ML
     Route: 065
     Dates: start: 20150318, end: 20150318
  92. DOCETAXEL SAGENT PHARMACEUTICALS [Suspect]
     Active Substance: DOCETAXEL
     Dosage: STRENGTH: 80MG, 80MG/4ML; DOSAGE: 120MG, NO OF CYCLES: 06, FREQUENCY: EVERY 3 WEEKS
     Route: 065
     Dates: start: 20141217, end: 20141217
  93. DOCETAXEL ACCORD HEALTHCARE [Suspect]
     Active Substance: DOCETAXEL
     Dosage: STRENGTH: 20MG, 20MG/1ML; DOSAGE: 120MG, NO OF CYCLES: 06, FREQUENCY: EVERY 3 WEEKS
     Route: 065
     Dates: start: 20150408, end: 20150408
  94. HERCEPTIN [Suspect]
     Active Substance: TRASTUZUMAB
     Dosage: NO OF CYCLES: 06, FREQUENCY: EVERY 3 WEEKS, STRENGTH: 440MG
     Route: 065
     Dates: start: 20150429, end: 20150429
  95. HERCEPTIN [Suspect]
     Active Substance: TRASTUZUMAB
     Dosage: NO OF CYCLES: 06, FREQUENCY: EVERY 3 WEEKS, STRENGTH: 440MG
     Route: 065
     Dates: start: 20150819, end: 20150819
  96. HERCEPTIN [Suspect]
     Active Substance: TRASTUZUMAB
     Dosage: NO OF CYCLES: 06, FREQUENCY: EVERY 3 WEEKS, STRENGTH: 440MG
     Route: 065
     Dates: start: 20160113, end: 20160113
  97. PERJETA [Suspect]
     Active Substance: PERTUZUMAB
     Dosage: NO OF CYCLES: 06, FREQUENCY: EVERY 3 WEEKS, STRENGTH: 420MG 30MG/14ML
     Route: 065
     Dates: start: 20150408, end: 20150408
  98. MAGNESIUM SULFATE. [Concomitant]
     Active Substance: MAGNESIUM SULFATE
     Dosage: 50% 5GM 10ML
     Route: 065
     Dates: start: 20150324, end: 20150324
  99. MAGNESIUM SULFATE. [Concomitant]
     Active Substance: MAGNESIUM SULFATE
     Dosage: 50% 5GM 10ML
     Route: 065
     Dates: start: 20150408, end: 20150408
  100. MAGNESIUM SULFATE. [Concomitant]
     Active Substance: MAGNESIUM SULFATE
     Dosage: 50% 5GM 10ML
     Route: 065
     Dates: start: 20150429, end: 20150429
  101. DEXAMETHASONE. [Concomitant]
     Active Substance: DEXAMETHASONE
     Dosage: 120MG 4MG/ML 30ML
     Route: 065
     Dates: start: 20141217, end: 20141217
  102. ATROPINE SULFATE. [Concomitant]
     Active Substance: ATROPINE SULFATE
     Dosage: 0.4MG/ML 20ML
     Route: 065
     Dates: start: 20150210, end: 20150210

REACTIONS (19)
  - Alopecia areata [Not Recovered/Not Resolved]
  - Nausea [Recovered/Resolved]
  - Dehydration [Recovered/Resolved]
  - Body temperature increased [Not Recovered/Not Resolved]
  - Tongue ulceration [Not Recovered/Not Resolved]
  - Hair texture abnormal [Not Recovered/Not Resolved]
  - Hypokalaemia [Not Recovered/Not Resolved]
  - Diarrhoea [Recovered/Resolved]
  - Electrolyte imbalance [Not Recovered/Not Resolved]
  - Hair colour changes [Not Recovered/Not Resolved]
  - Vomiting [Not Recovered/Not Resolved]
  - Hypophagia [Not Recovered/Not Resolved]
  - Skin disorder [Not Recovered/Not Resolved]
  - Tachycardia [Not Recovered/Not Resolved]
  - Madarosis [Not Recovered/Not Resolved]
  - Hypomagnesaemia [Not Recovered/Not Resolved]
  - Acute kidney injury [Not Recovered/Not Resolved]
  - Pancytopenia [Not Recovered/Not Resolved]
  - Urinary tract infection [Not Recovered/Not Resolved]

NARRATIVE: CASE EVENT DATE: 2015
